FAERS Safety Report 10210121 (Version 1)
Quarter: 2014Q2

REPORT INFORMATION
  Report Type: Spontaneous
  Country: US (occurrence: None)
  Receive Date: 20140528
  Receipt Date: 20140528
  Transmission Date: 20141212
  Serious: Yes (Other)
  Sender: FDA-Public Use
  Company Number: DAV-AE-PEN-14-02

PATIENT
  Age: 10 Year
  Sex: Male

DRUGS (1)
  1. PENICILLIN V POTASSIUM [Suspect]

REACTIONS (1)
  - Mania [None]
